FAERS Safety Report 5594932-9 (Version None)
Quarter: 2008Q1

REPORT INFORMATION
  Report Type: 
  Country: None (occurrence: None)
  Receive Date: 20080117
  Receipt Date: 20080111
  Transmission Date: 20080703
  Serious: Yes (Other)
  Sender: FDA-Public Use
  Company Number: US-MERCK-0801USA02503

PATIENT
  Age: 25 Year
  Sex: Female

DRUGS (5)
  1. FOSAMAX [Suspect]
     Indication: OSTEOPOROSIS
     Route: 048
     Dates: start: 20071101
  2. FOSAMAX [Suspect]
     Route: 048
     Dates: end: 20080109
  3. DEPAKOTE [Concomitant]
     Route: 065
  4. CARBATROL [Concomitant]
     Route: 065
  5. NADOLOL [Concomitant]
     Route: 065

REACTIONS (4)
  - ASTHENIA [None]
  - BLOOD SODIUM DECREASED [None]
  - CONVULSION [None]
  - LETHARGY [None]
